FAERS Safety Report 13300063 (Version 3)
Quarter: 2017Q2

REPORT INFORMATION
  Report Type: Spontaneous
  Country: PL (occurrence: PL)
  Receive Date: 20170306
  Receipt Date: 20170412
  Transmission Date: 20170830
  Serious: Yes (Hospitalization)
  Sender: FDA-Public Use
  Company Number: PL-BIOGEN-2017BI00365936

PATIENT
  Age: 22 Year
  Sex: Female

DRUGS (2)
  1. TYSABRI [Suspect]
     Active Substance: NATALIZUMAB
     Route: 042
  2. TYSABRI [Suspect]
     Active Substance: NATALIZUMAB
     Indication: MULTIPLE SCLEROSIS
     Dosage: INFUSED OVER 1 HOUR
     Route: 042
     Dates: start: 201409, end: 201702

REACTIONS (5)
  - Neutropenia [Unknown]
  - Lymphocytosis [Unknown]
  - Drug hypersensitivity [Unknown]
  - Upper respiratory tract infection [Recovered/Resolved]
  - Toxoplasmosis [Recovered/Resolved]

NARRATIVE: CASE EVENT DATE: 201611
